FAERS Safety Report 4962883-6 (Version None)
Quarter: 2006Q2

REPORT INFORMATION
  Report Type: 
  Country: None (occurrence: None)
  Receive Date: 20060405
  Receipt Date: 20060331
  Transmission Date: 20061013
  Serious: Yes (Life-Threatening, Hospitalization)
  Sender: FDA-Public Use
  Company Number: PHEH2006US04306

PATIENT
  Age: 25 Year
  Sex: Female
  Weight: 56.689 kg

DRUGS (1)
  1. ELIDEL [Suspect]
     Dosage: UNK, BID
     Route: 061
     Dates: start: 20030414, end: 20060101

REACTIONS (1)
  - NON-HODGKIN'S LYMPHOMA [None]
